FAERS Safety Report 6377149-X (Version None)
Quarter: 2009Q3

REPORT INFORMATION
  Report Type: 
  Country: None (occurrence: None)
  Receive Date: 20090925
  Receipt Date: 20090915
  Transmission Date: 20100115
  Serious: Yes (Hospitalization)
  Sender: FDA-Public Use
  Company Number: GB-PFIZER INC-2009217934

PATIENT
  Age: 42 Year

DRUGS (6)
  1. ESTRADIOL CIPIONATE AND ESTRADIOL [Suspect]
     Indication: OFF LABEL USE
     Dosage: 100 MG, 1X/DAY
     Route: 062
  2. ESTRADIOL AND ESTRADIOL CIPIONATE [Suspect]
     Indication: TRANSGENDER HORMONAL THERAPY
  3. SPIRONOLACTONE [Suspect]
     Indication: OFF LABEL USE
     Dosage: 200 MG, 1X/DAY
     Route: 048
  4. SPIRONOLACTONE [Suspect]
     Indication: TRANSGENDER HORMONAL THERAPY
  5. ETHINYLESTRADIOL [Suspect]
     Indication: OFF LABEL USE
     Dosage: 30 UG, 1X/DAY
     Route: 048
  6. ETHINYLESTRADIOL [Suspect]
     Indication: TRANSGENDER HORMONAL THERAPY

REACTIONS (1)
  - PULMONARY EMBOLISM [None]
